FAERS Safety Report 4463240-1 (Version None)
Quarter: 2004Q3

REPORT INFORMATION
  Report Type: 
  Country: None (occurrence: None)
  Receive Date: 20040930
  Receipt Date: 20040928
  Transmission Date: 20050211
  Serious: Yes (Other)
  Sender: FDA-Public Use
  Company Number: US-GLAXOSMITHKLINE-A0527708A

PATIENT
  Age: 32 Year
  Sex: Female

DRUGS (2)
  1. AVANDIA [Suspect]
     Indication: MENSTRUATION IRREGULAR
     Dosage: 4MG PER DAY
     Route: 048
     Dates: start: 20030601
  2. NO CONCURRENT MEDICATION [Concomitant]

REACTIONS (2)
  - ABORTION SPONTANEOUS [None]
  - DRUG EXPOSURE DURING PREGNANCY [None]
